FAERS Safety Report 4952776-2 (Version None)
Quarter: 2006Q1

REPORT INFORMATION
  Report Type: 
  Country: None (occurrence: None)
  Receive Date: 20060324
  Receipt Date: 20060316
  Transmission Date: 20060701
  Serious: Yes (Death, Hospitalization)
  Sender: FDA-Public Use
  Company Number: CH-JNJFOC-20050901948

PATIENT
  Sex: Male
  Weight: 66 kg

DRUGS (6)
  1. CAELYX [Suspect]
     Route: 042
  2. CAELYX [Suspect]
     Route: 042
  3. CAELYX [Suspect]
     Indication: MYCOSIS FUNGOIDES
     Route: 042
  4. CETIRIZINE HCL [Concomitant]
  5. EFFEXOR [Concomitant]
  6. VALIUM [Concomitant]

REACTIONS (3)
  - BACK PAIN [None]
  - FALL [None]
  - STAPHYLOCOCCAL INFECTION [None]
